FAERS Safety Report 7621029-6 (Version None)
Quarter: 2011Q3

REPORT INFORMATION
  Report Type: 
  Country: None (occurrence: None)
  Receive Date: 20110719
  Receipt Date: 20100920
  Transmission Date: 20111222
  Serious: No
  Sender: FDA-Public Use
  Company Number: US-KINGPHARMUSA00001-K201001181

PATIENT
  Sex: Female
  Weight: 81.633 kg

DRUGS (1)
  1. LEVOXYL [Suspect]
     Indication: RADIOACTIVE IODINE THERAPY
     Dosage: 150 MCG, QD
     Route: 048
     Dates: start: 20030101

REACTIONS (5)
  - DRUG INTOLERANCE [None]
  - DYSPNOEA [None]
  - MYALGIA [None]
  - FEELING HOT [None]
  - TERMINAL INSOMNIA [None]
